FAERS Safety Report 21791452 (Version 2)
Quarter: 2023Q1

REPORT INFORMATION
  Report Type: Spontaneous
  Country: US (occurrence: US)
  Receive Date: 20221228
  Receipt Date: 20230125
  Transmission Date: 20230417
  Serious: Yes (Other)
  Sender: FDA-Public Use
  Company Number: US-BEH-2022153589

PATIENT
  Age: 55 Year
  Sex: Female

DRUGS (3)
  1. HIZENTRA [Suspect]
     Active Substance: HUMAN IMMUNOGLOBULIN G
     Indication: Immunodeficiency common variable
     Dosage: 10 GRAM, QW
     Route: 058
     Dates: start: 202106
  2. HIZENTRA [Suspect]
     Active Substance: HUMAN IMMUNOGLOBULIN G
     Dosage: 10 GRAM, QW
     Route: 058
     Dates: start: 20200917
  3. IRON [Suspect]
     Active Substance: IRON
     Route: 042

REACTIONS (6)
  - Anaemia [Recovered/Resolved]
  - Contusion [Unknown]
  - Infusion site swelling [Unknown]
  - Infusion site bruising [Unknown]
  - Infusion site swelling [Recovered/Resolved]
  - Infusion site bruising [Recovered/Resolved]

NARRATIVE: CASE EVENT DATE: 20221101
